FAERS Safety Report 23830110 (Version 1)
Quarter: 2024Q2

REPORT INFORMATION
  Report Type: Spontaneous
  Country: NL (occurrence: NL)
  Receive Date: 20240508
  Receipt Date: 20240508
  Transmission Date: 20240715
  Serious: Yes (Life-Threatening)
  Sender: FDA-Public Use
  Company Number: None

PATIENT
  Age: 76 Year
  Sex: Female
  Weight: 54 kg

DRUGS (5)
  1. METOPROLOL [Suspect]
     Active Substance: METOPROLOL
     Indication: Atrial fibrillation
     Dosage: 200 MILLIGRAM, QD (1X DAILY 1 PIECE)
     Route: 065
     Dates: start: 20240415, end: 20240423
  2. VERAPAMIL [Suspect]
     Active Substance: VERAPAMIL HYDROCHLORIDE
     Indication: Atrial fibrillation
     Dosage: 240 MILLIGRAM, QD (1X DAILY 1 PIECE)
     Route: 065
     Dates: start: 20240221, end: 20240423
  3. NOREPINEPHRINE [Concomitant]
     Active Substance: NOREPINEPHRINE\NOREPINEPHRINE BITARTRATE
     Dosage: INFUSION LIQUID, 0.1 MG/ML (MILLIGRAMS PER MILLILITRE)
     Route: 065
  4. DOBUTAMINE [Concomitant]
     Active Substance: DOBUTAMINE HYDROCHLORIDE
     Dosage: INFUSION FLUID, 5 MG/ML (MILLIGRAMS PER MILLILITRE)
     Route: 065
  5. ISOPROTERENOL HYDROCHLORIDE [Concomitant]
     Active Substance: ISOPROTERENOL HYDROCHLORIDE
     Dosage: INFUSION, 1 MG/MG (MILLIGRAM PER MILLIGRAM)
     Route: 065

REACTIONS (1)
  - Cardiogenic shock [Recovering/Resolving]
